FAERS Safety Report 9549118 (Version 3)
Quarter: 2014Q2

REPORT INFORMATION
  Report Type: Spontaneous
  Country: US (occurrence: US)
  Receive Date: 20130924
  Receipt Date: 20140516
  Transmission Date: 20141212
  Serious: Yes (Hospitalization)
  Sender: FDA-Public Use
  Company Number: US-BAYER-2013-115376

PATIENT
  Age: 25 Year
  Sex: Female
  Weight: 68 kg

DRUGS (3)
  1. MIRENA [Suspect]
     Indication: CONTRACEPTION
     Dosage: 20 MCG/24HR, CONT
     Route: 015
     Dates: start: 20080610, end: 20130201
  2. PREDNISONE [Concomitant]
     Indication: RENAL DISORDER
     Dosage: UNK
     Dates: start: 2005
  3. HYDROXYCHLOROQUINE [Concomitant]
     Indication: ARTHRITIS
     Dosage: UNK
     Dates: start: 2005

REACTIONS (5)
  - Uterine perforation [None]
  - Flank pain [None]
  - Injury [None]
  - Emotional distress [None]
  - Abdominal pain [None]
